FAERS Safety Report 24545633 (Version 2)
Quarter: 2025Q3

REPORT INFORMATION
  Report Type: Report from Study
  Country: TW (occurrence: TW)
  Receive Date: 20241024
  Receipt Date: 20250809
  Transmission Date: 20251021
  Serious: Yes (Other)
  Sender: ALEXION PHARMACEUTICALS
  Company Number: TW-ASTRAZENECA-202410GLO008954TW

PATIENT

DRUGS (1)
  1. TAGRISSO [Suspect]
     Active Substance: OSIMERTINIB
     Indication: Non-small cell lung cancer

REACTIONS (3)
  - Malignant neoplasm progression [Unknown]
  - Acquired gene mutation [Unknown]
  - Drug resistance [Unknown]
